FAERS Safety Report 6676032-X (Version None)
Quarter: 2010Q2

REPORT INFORMATION
  Report Type: 
  Country: None (occurrence: None)
  Receive Date: 20100412
  Receipt Date: 20100223
  Transmission Date: 20101027
  Serious: No
  Sender: FDA-Public Use
  Company Number: 2010BI006187

PATIENT
  Age: 63 Year
  Sex: Male

DRUGS (3)
  1. TYSABRI [Suspect]
     Indication: MULTIPLE SCLEROSIS
     Route: 042
     Dates: start: 20070723
  2. TYSABRI [Suspect]
     Route: 042
  3. AVONEX [Concomitant]
     Indication: MULTIPLE SCLEROSIS
     Route: 030

REACTIONS (1)
  - LIVER FUNCTION TEST ABNORMAL [None]
